FAERS Safety Report 18405485 (Version 1)
Quarter: 2020Q4

REPORT INFORMATION
  Report Type: Spontaneous
  Country: FR (occurrence: FR)
  Receive Date: 20201020
  Receipt Date: 20201020
  Transmission Date: 20210114
  Serious: Yes (Other)
  Sender: FDA-Public Use
  Company Number: FR-PFIZER INC-2020401713

PATIENT
  Age: 58 Year
  Sex: Female

DRUGS (2)
  1. TAZOCILLINE [Suspect]
     Active Substance: PIPERACILLIN SODIUM\TAZOBACTAM SODIUM
     Indication: LUNG DISORDER
     Dosage: UNK
     Route: 042
     Dates: start: 20200915, end: 20200929
  2. LINEZOLID. [Suspect]
     Active Substance: LINEZOLID
     Indication: LUNG DISORDER
     Dosage: UNK
     Route: 042
     Dates: start: 20200926, end: 20200929

REACTIONS (2)
  - Leukopenia [Recovering/Resolving]
  - Neutropenia [Recovering/Resolving]

NARRATIVE: CASE EVENT DATE: 20200928
